FAERS Safety Report 10901581 (Version 1)
Quarter: 2015Q1

REPORT INFORMATION
  Report Type: Report from Study
  Country: DE (occurrence: DE)
  Receive Date: 20150310
  Receipt Date: 20150310
  Transmission Date: 20150721
  Serious: Yes (Hospitalization)
  Sender: FDA-Public Use
  Company Number: DE-ABBVIE-15K-062-1356229-00

PATIENT
  Age: 31 Year
  Sex: Male

DRUGS (2)
  1. HUMIRA [Suspect]
     Active Substance: ADALIMUMAB
     Indication: UVEITIS
     Route: 065
     Dates: start: 20120601
  2. HUMIRA [Suspect]
     Active Substance: ADALIMUMAB
     Indication: OFF LABEL USE

REACTIONS (3)
  - Pancreatic operation [Recovered/Resolved]
  - Eye inflammation [Recovered/Resolved]
  - Off label use [Not Recovered/Not Resolved]

NARRATIVE: CASE EVENT DATE: 201412
